FAERS Safety Report 13455107 (Version 3)
Quarter: 2017Q3

REPORT INFORMATION
  Report Type: Spontaneous
  Country: JP (occurrence: JP)
  Receive Date: 20170419
  Receipt Date: 20170721
  Transmission Date: 20171127
  Serious: Yes (Other)
  Sender: FDA-Public Use
  Company Number: JP-ELI_LILLY_AND_COMPANY-JP201704006094

PATIENT
  Age: 80 Year
  Sex: Male
  Weight: 63 kg

DRUGS (1)
  1. ERBITUX [Suspect]
     Active Substance: CETUXIMAB
     Indication: LARYNGEAL CANCER
     Dosage: 400 MG/M2, UNKNOWN
     Route: 042
     Dates: start: 20160128, end: 20160129

REACTIONS (1)
  - Cell marker increased [Recovering/Resolving]

NARRATIVE: CASE EVENT DATE: 20160129
